FAERS Safety Report 6841915-4 (Version None)
Quarter: 2010Q3

REPORT INFORMATION
  Report Type: 
  Country: None (occurrence: None)
  Receive Date: 20100714
  Receipt Date: 20071020
  Transmission Date: 20110219
  Serious: No
  Sender: FDA-Public Use
  Company Number: US-PFIZER INC-2007059627

PATIENT
  Sex: Female
  Weight: 90 kg

DRUGS (9)
  1. CHANTIX [Suspect]
     Indication: SMOKING CESSATION THERAPY
     Dates: start: 20070626
  2. ACCUPRIL [Concomitant]
  3. POTASSIUM CHLORIDE [Concomitant]
  4. TOPROL-XL [Concomitant]
  5. NORVASC [Concomitant]
  6. LASIX [Concomitant]
     Dosage: 1/2 TABLETS
  7. ACETYLSALICYLIC ACID [Concomitant]
  8. PRAVACHOL [Concomitant]
  9. PREMPRO [Concomitant]

REACTIONS (3)
  - DYSPEPSIA [None]
  - IMPAIRED WORK ABILITY [None]
  - NAUSEA [None]
